FAERS Safety Report 6833703-X (Version None)
Quarter: 2010Q3

REPORT INFORMATION
  Report Type: 
  Country: None (occurrence: None)
  Receive Date: 20100712
  Receipt Date: 20070331
  Transmission Date: 20110219
  Serious: No
  Sender: FDA-Public Use
  Company Number: US-PFIZER INC-2007026822

PATIENT
  Sex: Female
  Weight: 53.07 kg

DRUGS (7)
  1. CHANTIX [Suspect]
     Indication: SMOKING CESSATION THERAPY
     Dates: start: 20070101
  2. CADUET [Concomitant]
  3. DOMPERIDONE MALEATE [Concomitant]
  4. ACETYLSALICYLIC ACID [Concomitant]
  5. CENTRUM [Concomitant]
  6. OSCAL [Concomitant]
  7. MULTIVITAMIN [Concomitant]

REACTIONS (1)
  - NAUSEA [None]
